FAERS Safety Report 8215544-4 (Version None)
Quarter: 2012Q1

REPORT INFORMATION
  Report Type: 
  Country: None (occurrence: None)
  Receive Date: 20120316
  Receipt Date: 20120302
  Transmission Date: 20120608
  Serious: Yes (Hospitalization, Other)
  Sender: FDA-Public Use
  Company Number: US-ELI_LILLY_AND_COMPANY-US201007002323

PATIENT
  Sex: Female

DRUGS (14)
  1. DIGOXIN [Concomitant]
  2. CALCIUM [Concomitant]
  3. CITALOPRAM HYDROBROMIDE [Concomitant]
     Dosage: 10 MG, QD
  4. PRAVASTATIN [Concomitant]
  5. FORTEO [Suspect]
     Indication: OSTEOPOROSIS
     Dosage: 20 UG, QD
  6. VITAMIN D [Concomitant]
  7. ASCORBIC ACID [Concomitant]
  8. NITROGLYCERIN [Concomitant]
     Route: 062
  9. OMEPRAZOLE [Concomitant]
  10. CARBIDOPA + LEVODOPA [Concomitant]
  11. BUDESONIDE [Concomitant]
  12. WARFARIN SODIUM [Concomitant]
  13. BROVANA [Concomitant]
  14. DUONEB [Concomitant]

REACTIONS (7)
  - BLOOD PRESSURE DECREASED [None]
  - FALL [None]
  - BLOOD PRESSURE ORTHOSTATIC ABNORMAL [None]
  - HIP FRACTURE [None]
  - BONE DENSITY DECREASED [None]
  - BALANCE DISORDER [None]
  - LACUNAR INFARCTION [None]
